FAERS Safety Report 21444482 (Version 2)
Quarter: 2022Q4

REPORT INFORMATION
  Report Type: Report from Study
  Country: US (occurrence: US)
  Receive Date: 20221012
  Receipt Date: 20221013
  Transmission Date: 20230113
  Serious: No
  Sender: FDA-Public Use
  Company Number: US-NOVARTISTESTPH-NVSC2022US229468

PATIENT
  Sex: Male

DRUGS (1)
  1. ENTRESTO [Suspect]
     Active Substance: SACUBITRIL\VALSARTAN
     Indication: Product used for unknown indication
     Dosage: UNK, BID 50 MG (24/26 MG: SACUBITRIL 24.3 MG, VALSARTAN 25.7 MG)
     Route: 065

REACTIONS (4)
  - Blood pressure increased [Recovered/Resolved]
  - Heart rate decreased [Unknown]
  - Oedema peripheral [Unknown]
  - Weight decreased [Unknown]
